FAERS Safety Report 4401063-X (Version None)
Quarter: 2004Q3

REPORT INFORMATION
  Report Type: 
  Country: None (occurrence: None)
  Receive Date: 20040907
  Receipt Date: 20031014
  Transmission Date: 20050211
  Serious: Yes (Hospitalization)
  Sender: FDA-Public Use
  Company Number: US-BRISTOL-MYERS SQUIBB COMPANY-12410122

PATIENT
  Age: 85 Year
  Sex: Female
  Weight: 52 kg

DRUGS (1)
  1. COUMADIN [Suspect]
     Indication: DEEP VEIN THROMBOSIS
     Route: 048
     Dates: start: 20030714, end: 20030726

REACTIONS (3)
  - CYANOSIS [None]
  - FAECES DISCOLOURED [None]
  - HAEMORRHAGE [None]
